FAERS Safety Report 14960017 (Version 1)
Quarter: 2018Q2

REPORT INFORMATION
  Report Type: Spontaneous
  Country: US (occurrence: US)
  Receive Date: 20180531
  Receipt Date: 20180531
  Transmission Date: 20180711
  Serious: Yes (Other)
  Sender: FDA-Public Use
  Company Number: US-ALSI-201800360

PATIENT
  Age: 32 Year
  Sex: Female

DRUGS (3)
  1. REMIFENTANIL [Concomitant]
     Active Substance: REMIFENTANIL
  2. NITROGEN. [Suspect]
     Active Substance: NITROGEN
     Indication: CRYOTHERAPY
     Route: 039
  3. PROPOFOL. [Concomitant]
     Active Substance: PROPOFOL

REACTIONS (1)
  - Hypoxia [Recovered/Resolved]

NARRATIVE: CASE EVENT DATE: 20180522
